FAERS Safety Report 22910642 (Version 2)
Quarter: 2023Q4

REPORT INFORMATION
  Report Type: Spontaneous
  Country: US (occurrence: US)
  Receive Date: 20230906
  Receipt Date: 20231019
  Transmission Date: 20240110
  Serious: Yes (Other)
  Sender: FDA-Public Use
  Company Number: US-002147023-NVSC2023US188659

PATIENT
  Sex: Female

DRUGS (1)
  1. XIIDRA [Suspect]
     Active Substance: LIFITEGRAST
     Indication: Dry eye
     Dosage: UNK, BID
     Route: 047

REACTIONS (9)
  - Cataract [Unknown]
  - Oropharyngeal discomfort [Unknown]
  - Throat irritation [Unknown]
  - Migraine [Unknown]
  - Dry throat [Unknown]
  - Dry eye [Unknown]
  - Headache [Unknown]
  - Hypersensitivity [Unknown]
  - Drug ineffective [Unknown]
